FAERS Safety Report 26133107 (Version 1)
Quarter: 2025Q4

REPORT INFORMATION
  Report Type: Spontaneous
  Country: IR (occurrence: IR)
  Receive Date: 20251209
  Receipt Date: 20251209
  Transmission Date: 20260118
  Serious: Yes (Life-Threatening, Hospitalization, Other)
  Sender: UNICHEM
  Company Number: IR-UNICHEM LABORATORIES LIMITED-UNI-2025-IR-004065

PATIENT

DRUGS (1)
  1. BACLOFEN [Suspect]
     Active Substance: BACLOFEN
     Indication: Product used for unknown indication
     Dosage: OVER 750 MILLIGRAM
     Route: 065

REACTIONS (5)
  - Brain death [Recovering/Resolving]
  - Intentional overdose [Unknown]
  - Toxicity to various agents [Recovering/Resolving]
  - Coma [Recovering/Resolving]
  - Intentional product misuse [Unknown]
